FAERS Safety Report 24198718 (Version 1)
Quarter: 2024Q3

REPORT INFORMATION
  Report Type: Spontaneous
  Country: US (occurrence: US)
  Receive Date: 20240812
  Receipt Date: 20240812
  Transmission Date: 20241017
  Serious: Yes (Death, Life-Threatening, Hospitalization)
  Sender: STRIDES
  Company Number: US-STRIDES ARCOLAB LIMITED-2024SP009951

PATIENT

DRUGS (14)
  1. VANCOMYCIN [Suspect]
     Active Substance: VANCOMYCIN
     Indication: Alpha haemolytic streptococcal infection
     Dosage: UNK
     Route: 065
  2. VANCOMYCIN [Suspect]
     Active Substance: VANCOMYCIN
     Indication: Streptococcal infection
     Dosage: UNK, RESTARTED
     Route: 065
  3. VANCOMYCIN [Suspect]
     Active Substance: VANCOMYCIN
     Indication: Neisseria infection
  4. VANCOMYCIN [Suspect]
     Active Substance: VANCOMYCIN
     Indication: Bacteraemia
  5. VANCOMYCIN [Suspect]
     Active Substance: VANCOMYCIN
     Indication: Pneumonia aspiration
  6. MEROPENEM [Suspect]
     Active Substance: MEROPENEM
     Indication: Alpha haemolytic streptococcal infection
     Dosage: UNK
     Route: 065
  7. MEROPENEM [Suspect]
     Active Substance: MEROPENEM
     Indication: Streptococcal infection
  8. MEROPENEM [Suspect]
     Active Substance: MEROPENEM
     Indication: Neisseria infection
  9. MEROPENEM [Suspect]
     Active Substance: MEROPENEM
     Indication: Bacteraemia
  10. CEFTRIAXONE [Suspect]
     Active Substance: CEFTRIAXONE\CEFTRIAXONE SODIUM
     Indication: Alpha haemolytic streptococcal infection
     Dosage: UNK
     Route: 065
  11. CEFTRIAXONE [Suspect]
     Active Substance: CEFTRIAXONE\CEFTRIAXONE SODIUM
     Indication: Streptococcal infection
  12. CEFTRIAXONE [Suspect]
     Active Substance: CEFTRIAXONE\CEFTRIAXONE SODIUM
     Indication: Neisseria infection
  13. CEFTRIAXONE [Suspect]
     Active Substance: CEFTRIAXONE\CEFTRIAXONE SODIUM
     Indication: Bacteraemia
  14. AMPICILLIN SODIUM\SULBACTAM SODIUM [Suspect]
     Active Substance: AMPICILLIN SODIUM\SULBACTAM SODIUM
     Indication: Pneumonia aspiration
     Dosage: UNK
     Route: 065

REACTIONS (2)
  - Death [Fatal]
  - Drug ineffective for unapproved indication [Unknown]
